FAERS Safety Report 22246797 (Version 1)
Quarter: 2023Q2

REPORT INFORMATION
  Report Type: Spontaneous
  Country: US (occurrence: US)
  Receive Date: 20230424
  Receipt Date: 20230424
  Transmission Date: 20230721
  Serious: No
  Sender: FDA-Public Use
  Company Number: US-MYLANLABS-2023M1041830

PATIENT
  Sex: Female
  Weight: 104.3 kg

DRUGS (4)
  1. ATORVASTATIN [Interacting]
     Active Substance: ATORVASTATIN
     Indication: Blood pressure abnormal
     Dosage: 20 MILLIGRAM, QD (20 MG TABLET 1 TABLET BY MOUTH NIGHTY (BEDTIME)
     Route: 048
  2. ATORVASTATIN [Interacting]
     Active Substance: ATORVASTATIN
     Indication: Blood triglycerides abnormal
  3. PAXLOVID [Interacting]
     Active Substance: NIRMATRELVIR\RITONAVIR
     Indication: COVID-19
     Dosage: UNK (300 MILLIGRAM (100 MG DOSE PACK)
     Route: 065
     Dates: start: 20230405
  4. PAXLOVID [Interacting]
     Active Substance: NIRMATRELVIR\RITONAVIR
     Dosage: UNK
     Route: 065

REACTIONS (1)
  - Labelled drug-drug interaction medication error [Unknown]
